FAERS Safety Report 4482607-9 (Version None)
Quarter: 2004Q4

REPORT INFORMATION
  Report Type: 
  Country: None (occurrence: None)
  Receive Date: 20041022
  Receipt Date: 20041011
  Transmission Date: 20050328
  Serious: Yes (Other)
  Sender: FDA-Public Use
  Company Number: DE-JNJFOC-20040905245

PATIENT
  Sex: Male

DRUGS (3)
  1. TOPAMAX [Suspect]
     Indication: EPILEPSY
     Route: 049
  2. ATORVASTATIN CALCIUM [Suspect]
     Indication: HYPERCHOLESTEROLAEMIA
     Route: 049
  3. MARCUMAR [Concomitant]
     Indication: MITRAL VALVE REPLACEMENT
     Dosage: DOSE WAS 3-6MG
     Route: 049

REACTIONS (1)
  - PROTHROMBIN LEVEL DECREASED [None]
